FAERS Safety Report 18632239 (Version 2)
Quarter: 2021Q1

REPORT INFORMATION
  Report Type: Report from Study
  Country: None (occurrence: US)
  Receive Date: 20201218
  Receipt Date: 20210217
  Transmission Date: 20210419
  Serious: No
  Sender: FDA-Public Use
  Company Number: US-ABBVIE-20K-163-3691448-00

PATIENT
  Age: 48 Year
  Sex: Female
  Weight: 93.07 kg

DRUGS (1)
  1. HUMIRA [Suspect]
     Active Substance: ADALIMUMAB
     Indication: RHEUMATOID ARTHRITIS
     Route: 058
     Dates: start: 20200803

REACTIONS (6)
  - Discomfort [Recovering/Resolving]
  - Osteoarthritis [Recovering/Resolving]
  - Orbital myositis [Unknown]
  - Back pain [Recovering/Resolving]
  - Pain [Recovering/Resolving]
  - Pain in extremity [Unknown]

NARRATIVE: CASE EVENT DATE: 202011
